FAERS Safety Report 6168811-2 (Version None)
Quarter: 2009Q2

REPORT INFORMATION
  Report Type: 
  Country: None (occurrence: None)
  Receive Date: 20090424
  Receipt Date: 20090424
  Transmission Date: 20091009
  Serious: No
  Sender: FDA-Public Use
  Company Number: None

PATIENT
  Sex: Female
  Weight: 81 kg

DRUGS (2)
  1. CISPLATIN [Suspect]
     Dosage: 146 MG
     Dates: end: 20090406
  2. ETOPOSIDE [Suspect]
     Dosage: 546 MG
     Dates: end: 20090408

REACTIONS (1)
  - AORTIC THROMBOSIS [None]
